FAERS Safety Report 5055476-6 (Version None)
Quarter: 2006Q3

REPORT INFORMATION
  Report Type: 
  Country: None (occurrence: None)
  Receive Date: 20060717
  Receipt Date: 20060717
  Transmission Date: 20061208
  Serious: Yes (Hospitalization)
  Sender: FDA-Public Use
  Company Number: None

PATIENT
  Age: 84 Year
  Sex: Female
  Weight: 95 kg

DRUGS (9)
  1. WARFARIN SODIUM [Suspect]
     Indication: AORTIC VALVE REPLACEMENT
     Dosage: 4 MG PO DAILY [CHRONIC]
     Route: 048
  2. WARFARIN SODIUM [Suspect]
     Indication: ATRIAL FIBRILLATION
     Dosage: 4 MG PO DAILY [CHRONIC]
     Route: 048
  3. WARFARIN SODIUM [Suspect]
     Indication: PROPHYLAXIS
     Dosage: 4 MG PO DAILY [CHRONIC]
     Route: 048
  4. DIGOXIN [Concomitant]
  5. PROTONIX [Concomitant]
  6. IRON [Concomitant]
  7. AMARYL [Concomitant]
  8. ALDACTONE [Concomitant]
  9. DEMADEX [Concomitant]

REACTIONS (6)
  - ANAEMIA [None]
  - CARDIOACTIVE DRUG LEVEL INCREASED [None]
  - HAEMOLYSIS [None]
  - INTERNATIONAL NORMALISED RATIO INCREASED [None]
  - RENAL FAILURE ACUTE [None]
  - UPPER GASTROINTESTINAL HAEMORRHAGE [None]
